FAERS Safety Report 23685062 (Version 1)
Quarter: 2024Q1

REPORT INFORMATION
  Report Type: Spontaneous
  Country: FR (occurrence: FR)
  Receive Date: 20240329
  Receipt Date: 20240329
  Transmission Date: 20240409
  Serious: Yes (Hospitalization, Other)
  Sender: FDA-Public Use
  Company Number: None

PATIENT
  Age: 87 Year
  Sex: Female

DRUGS (7)
  1. METFORMIN\SITAGLIPTIN [Suspect]
     Active Substance: METFORMIN\SITAGLIPTIN
     Indication: Product administration error
     Dosage: 1 DOSAGE FORM, ONCE
     Route: 048
     Dates: start: 20240305, end: 20240305
  2. NICARDIPINE HYDROCHLORIDE [Suspect]
     Active Substance: NICARDIPINE HYDROCHLORIDE
     Indication: Product administration error
     Route: 048
     Dates: start: 20240305, end: 20240305
  3. FLUINDIONE [Suspect]
     Active Substance: FLUINDIONE
     Indication: Product administration error
     Dosage: 20 MILLIGRAM, ONCE
     Route: 048
     Dates: start: 20240305, end: 20240305
  4. RISPERDAL [Concomitant]
     Active Substance: RISPERIDONE
  5. BISOPROLOL FUMARATE [Concomitant]
     Active Substance: BISOPROLOL FUMARATE
  6. ELIQUIS [Concomitant]
     Active Substance: APIXABAN
  7. OXAZEPAM [Concomitant]
     Active Substance: OXAZEPAM

REACTIONS (2)
  - Altered state of consciousness [Recovered/Resolved]
  - Hypotension [Recovered/Resolved]

NARRATIVE: CASE EVENT DATE: 20240305
